FAERS Safety Report 8610351-2 (Version None)
Quarter: 2012Q3

REPORT INFORMATION
  Report Type: 
  Country: None (occurrence: None)
  Receive Date: 20120822
  Receipt Date: 20120817
  Transmission Date: 20120928
  Serious: Yes (Hospitalization)
  Sender: FDA-Public Use
  Company Number: PHFR2012GB004388

PATIENT
  Sex: Male

DRUGS (2)
  1. CLOZARIL [Suspect]
     Indication: SCHIZOPHRENIA
     Dosage: 100 UKN, BID
     Route: 048
     Dates: start: 20021010
  2. ZANTAC [Concomitant]
     Dosage: UNK UKN, UNK
     Route: 048

REACTIONS (1)
  - LOCALISED INFECTION [None]
